FAERS Safety Report 26179308 (Version 1)
Quarter: 2025Q4

REPORT INFORMATION
  Report Type: Spontaneous
  Country: US (occurrence: None)
  Receive Date: 20251218
  Receipt Date: 20251218
  Transmission Date: 20260118
  Serious: Yes (Hospitalization)
  Sender: FDA-CTU
  Company Number: None

PATIENT
  Age: 52 Year
  Sex: Male

DRUGS (14)
  1. ENVARSUS XR [Suspect]
     Active Substance: TACROLIMUS
     Indication: Renal transplant
     Dosage: FREQUENCY : DAILY;
     Route: 048
  2. ATORVASTATIN [Concomitant]
     Active Substance: ATORVASTATIN
  3. CARVEDILOL [Concomitant]
     Active Substance: CARVEDILOL
  4. CILOSTAZOL [Concomitant]
     Active Substance: CILOSTAZOL
  5. CLOPIDOGREL [Concomitant]
     Active Substance: CLOPIDOGREL BISULFATE
  6. FAMOTIDINE [Concomitant]
     Active Substance: FAMOTIDINE
  7. furosemide 80mg [Concomitant]
  8. humalog 100unit/ml kwik pen [Concomitant]
  9. lantus solostar pen 3ml [Concomitant]
  10. MOUNJARO [Concomitant]
     Active Substance: TIRZEPATIDE
  11. nifepidine 30mg er [Concomitant]
  12. LUTICASONE 50MCG NASAL S [Concomitant]
  13. LORATADINE [Concomitant]
     Active Substance: LORATADINE
  14. PREGABALIN [Concomitant]
     Active Substance: PREGABALIN

REACTIONS (3)
  - Nasopharyngitis [None]
  - Urinary tract infection [None]
  - Bacteraemia [None]

NARRATIVE: CASE EVENT DATE: 20251216
